FAERS Safety Report 22060622 (Version 1)
Quarter: 2023Q1

REPORT INFORMATION
  Report Type: Spontaneous
  Country: US (occurrence: US)
  Receive Date: 20230303
  Receipt Date: 20230303
  Transmission Date: 20230418
  Serious: No
  Sender: FDA-Public Use
  Company Number: US-TAKEDA-2023TUS018963

PATIENT
  Sex: Female

DRUGS (2)
  1. INTUNIV [Suspect]
     Active Substance: GUANFACINE HYDROCHLORIDE
     Indication: Autism spectrum disorder
     Dosage: 1 MILLIGRAM
     Route: 065
  2. INTUNIV [Suspect]
     Active Substance: GUANFACINE HYDROCHLORIDE
     Dosage: 4 MILLIGRAM
     Route: 065

REACTIONS (4)
  - Emotional disorder [Unknown]
  - General physical health deterioration [Unknown]
  - Insurance issue [Not Recovered/Not Resolved]
  - Off label use [Unknown]
